FAERS Safety Report 7621794-8 (Version None)
Quarter: 2011Q3

REPORT INFORMATION
  Report Type: 
  Country: None (occurrence: None)
  Receive Date: 20110720
  Receipt Date: 20110701
  Transmission Date: 20111222
  Serious: Yes (Hospitalization)
  Sender: FDA-Public Use
  Company Number: DK-BIOGENIDEC-2011BI000535

PATIENT
  Age: 32 Year
  Sex: Female

DRUGS (7)
  1. RAMIPRIL [Concomitant]
  2. VARENICLINE TARTRATE [Concomitant]
  3. WARFARIN SODIUM [Concomitant]
  4. GLUCOSAMINE [Concomitant]
  5. TYSABRI [Suspect]
     Indication: MULTIPLE SCLEROSIS
     Route: 042
     Dates: start: 20091013, end: 20101112
  6. TYSABRI [Suspect]
     Route: 042
     Dates: start: 20110101
  7. PREDNISOLONE [Concomitant]

REACTIONS (1)
  - HENOCH-SCHONLEIN PURPURA [None]
